FAERS Safety Report 7449685-6 (Version None)
Quarter: 2011Q2

REPORT INFORMATION
  Report Type: 
  Country: None (occurrence: None)
  Receive Date: 20110421
  Receipt Date: 20110307
  Transmission Date: 20111010
  Serious: Yes (Other)
  Sender: FDA-Public Use
  Company Number: 2011001160

PATIENT
  Age: 73 Year
  Sex: Female

DRUGS (1)
  1. TARCEVA [Suspect]
     Indication: NON-SMALL CELL LUNG CANCER
     Dosage: (150 MG QD), ORAL
     Route: 048

REACTIONS (8)
  - DRY SKIN [None]
  - PARONYCHIA [None]
  - SKIN FISSURES [None]
  - GLOSSITIS [None]
  - PRURITUS [None]
  - SKIN TOXICITY [None]
  - VITAMIN B2 DEFICIENCY [None]
  - CHEILOSIS [None]
